FAERS Safety Report 9308204 (Version 1)
Quarter: 2013Q2

REPORT INFORMATION
  Report Type: Spontaneous
  Country: US (occurrence: US)
  Receive Date: 20130523
  Receipt Date: 20130523
  Transmission Date: 20140414
  Serious: Yes (Other)
  Sender: FDA-Public Use
  Company Number: US-RB-054314-13

PATIENT
  Age: 84 Year
  Sex: Female

DRUGS (1)
  1. MUCINEX [Suspect]
     Indication: PRODUCT USED FOR UNKNOWN INDICATION
     Dosage: LAST TOOK ON 09-MAY-2013. TOOK TOTAL OF 20 TABLETS.
     Route: 048
     Dates: start: 20130506

REACTIONS (1)
  - Thrombocytopenia [Recovered/Resolved]
